FAERS Safety Report 8142931-5 (Version None)
Quarter: 2012Q1

REPORT INFORMATION
  Report Type: 
  Country: None (occurrence: None)
  Receive Date: 20120217
  Receipt Date: 20120203
  Transmission Date: 20120608
  Serious: Yes (Other)
  Sender: FDA-Public Use
  Company Number: BR-AMGEN-BRASP2012007651

PATIENT
  Age: 60 Year
  Sex: Male
  Weight: 68 kg

DRUGS (5)
  1. ENBREL [Suspect]
     Dosage: 50 MG, ONCE WEEKLY, PRE FILLED PEN
     Route: 058
     Dates: start: 20111201
  2. TYLENOL (CAPLET) [Concomitant]
     Indication: PAIN IN EXTREMITY
     Dosage: 750 MG, EVERY 6 HOURS
  3. ENBREL [Suspect]
     Indication: RHEUMATOID ARTHRITIS
     Dosage: 25 MG, 2X/WEEK, POWDER AND SOLVENT FOR SOLUTION FOR INJECTION
     Route: 058
     Dates: start: 20080101, end: 20111201
  4. TYLENOL (CAPLET) [Concomitant]
     Indication: NECK PAIN
  5. TYLENOL (CAPLET) [Concomitant]
     Indication: BONE PAIN

REACTIONS (5)
  - GAIT DISTURBANCE [None]
  - ARTHRALGIA [None]
  - BLOOD CHOLESTEROL ABNORMAL [None]
  - NECK PAIN [None]
  - INJECTION SITE PAIN [None]
